FAERS Safety Report 7201596-7 (Version None)
Quarter: 2010Q4

REPORT INFORMATION
  Report Type: 
  Country: None (occurrence: None)
  Receive Date: 20101216
  Receipt Date: 20101201
  Transmission Date: 20110411
  Serious: Yes (Other)
  Sender: FDA-Public Use
  Company Number: 2010AP002577

PATIENT
  Age: 13 Year
  Sex: Male

DRUGS (7)
  1. RISPERIDONE [Suspect]
     Indication: ATTENTION DEFICIT/HYPERACTIVITY DISORDER
     Dosage: 0.25 MG, BID, ORAL
     Route: 048
     Dates: start: 20060601
  2. RISPERIDONE [Suspect]
     Indication: AUTISM
     Dosage: 0.25 MG, BID, ORAL
     Route: 048
     Dates: start: 20060601
  3. EQUASYM [Suspect]
     Indication: ATTENTION DEFICIT/HYPERACTIVITY DISORDER
     Dosage: 50 MG QD, PO
     Route: 048
     Dates: start: 20060901
  4. EQUASYM [Suspect]
     Indication: AUTISM
     Dosage: 50 MG QD, PO
     Route: 048
     Dates: start: 20060901
  5. PRED FORTE [Suspect]
     Dosage: EYE_DROP, IO;
  6. VEXOL [Suspect]
     Dosage: EYE_DROP; IO;
  7. METHYLPHENIDATE [Concomitant]

REACTIONS (2)
  - BENIGN INTRACRANIAL HYPERTENSION [None]
  - EYE SWELLING [None]
